FAERS Safety Report 22187032 (Version 4)
Quarter: 2023Q2

REPORT INFORMATION
  Report Type: Spontaneous
  Country: US (occurrence: US)
  Receive Date: 20230407
  Receipt Date: 20230525
  Transmission Date: 20230721
  Serious: Yes (Other)
  Sender: FDA-Public Use
  Company Number: US-Blueprint Medicines Corporation-1024

PATIENT
  Age: 17 Year
  Sex: Female
  Weight: 80.6 kg

DRUGS (4)
  1. AYVAKIT [Suspect]
     Active Substance: AVAPRITINIB
     Indication: Brain neoplasm malignant
     Route: 065
     Dates: start: 20230124
  2. AYVAKIT [Suspect]
     Active Substance: AVAPRITINIB
     Route: 065
  3. AYVAKIT [Suspect]
     Active Substance: AVAPRITINIB
     Route: 065
     Dates: start: 20230414
  4. AYVAKIT [Suspect]
     Active Substance: AVAPRITINIB
     Route: 065
     Dates: start: 20230124, end: 20230407

REACTIONS (8)
  - Epistaxis [Unknown]
  - Vomiting [Recovered/Resolved]
  - Nausea [Recovered/Resolved]
  - Radiation necrosis [Unknown]
  - Minimal residual disease [Unknown]
  - Hair colour changes [Not Recovered/Not Resolved]
  - Blood bilirubin increased [Recovering/Resolving]
  - Off label use [Unknown]

NARRATIVE: CASE EVENT DATE: 20230407
